FAERS Safety Report 25594668 (Version 1)
Quarter: 2025Q3

REPORT INFORMATION
  Report Type: Spontaneous
  Country: UA (occurrence: UA)
  Receive Date: 20250723
  Receipt Date: 20250723
  Transmission Date: 20251021
  Serious: Yes (Life-Threatening)
  Sender: ROCHE
  Company Number: UA-BoehringerIngelheim-2025-BI-083854

PATIENT
  Age: 63 Year
  Sex: Male
  Weight: 97 kg

DRUGS (2)
  1. ALTEPLASE [Suspect]
     Active Substance: ALTEPLASE
     Indication: Cerebrovascular accident
     Route: 042
  2. ALTEPLASE [Suspect]
     Active Substance: ALTEPLASE
     Route: 065

REACTIONS (4)
  - Paralysis [Unknown]
  - Haemoptysis [Not Recovered/Not Resolved]
  - Aphasia [Unknown]
  - Agitation [Unknown]

NARRATIVE: CASE EVENT DATE: 20250717
